FAERS Safety Report 10464350 (Version 2)
Quarter: 2014Q4

REPORT INFORMATION
  Report Type: Spontaneous
  Country: RU (occurrence: RU)
  Receive Date: 20140919
  Receipt Date: 20141008
  Transmission Date: 20150528
  Serious: Yes (Hospitalization)
  Sender: FDA-Public Use
  Company Number: RU-SA-2014SA127382

PATIENT
  Age: 51 Year
  Sex: Female

DRUGS (3)
  1. FUROSEMIDE. [Suspect]
     Active Substance: FUROSEMIDE
     Indication: FLUID RETENTION
     Dosage: TWO OR THREE TIMES PER WEEK
     Route: 065
     Dates: start: 1993
  2. 5-NOK [Concomitant]
  3. FUROSEMIDE. [Suspect]
     Active Substance: FUROSEMIDE
     Indication: FLUID RETENTION
     Dosage: TWO OR THREE TIMES PER WEEK
     Route: 065
     Dates: start: 1993

REACTIONS (21)
  - Asthenia [Recovered/Resolved]
  - Dizziness [Recovered/Resolved]
  - Blood creatinine increased [Recovered/Resolved]
  - Vomiting [Recovered/Resolved]
  - Dehydration [Recovered/Resolved]
  - Blood pressure decreased [Recovered/Resolved]
  - Tubulointerstitial nephritis [Recovered/Resolved]
  - Urine output decreased [Recovered/Resolved]
  - Drug abuse [Recovered/Resolved]
  - Leukocytosis [Recovered/Resolved]
  - Anuria [Recovered/Resolved]
  - Gastroenteritis [Recovered/Resolved]
  - Nausea [Recovered/Resolved]
  - Diarrhoea [Recovered/Resolved]
  - Acute kidney injury [Recovered/Resolved]
  - Blood urea increased [Recovered/Resolved]
  - Hyponatraemia [Recovered/Resolved]
  - Body temperature increased [Recovered/Resolved]
  - Polyuria [Recovered/Resolved]
  - Blood potassium increased [Recovered/Resolved]
  - Tongue dry [Recovered/Resolved]

NARRATIVE: CASE EVENT DATE: 20131127
